FAERS Safety Report 18060892 (Version 1)
Quarter: 2020Q3

REPORT INFORMATION
  Report Type: Spontaneous
  Country: IT (occurrence: IT)
  Receive Date: 20200723
  Receipt Date: 20200723
  Transmission Date: 20201103
  Serious: Yes (Other)
  Sender: FDA-Public Use
  Company Number: NVSC2020IT201571

PATIENT
  Age: 58 Year
  Sex: Male

DRUGS (1)
  1. COSENTYX [Suspect]
     Active Substance: SECUKINUMAB
     Indication: ANKYLOSING SPONDYLITIS
     Dosage: 150 MG, CYCLIC
     Route: 058
     Dates: start: 20190902, end: 20200518

REACTIONS (3)
  - Pruritus [Unknown]
  - Rash macular [Unknown]
  - Angioedema [Unknown]

NARRATIVE: CASE EVENT DATE: 20200518
